FAERS Safety Report 10168319 (Version 2)
Quarter: 2014Q3

REPORT INFORMATION
  Report Type: Report from Study
  Country: BR (occurrence: BR)
  Receive Date: 20140512
  Receipt Date: 20140714
  Transmission Date: 20150326
  Serious: Yes (Hospitalization, Other)
  Sender: FDA-Public Use
  Company Number: PHHY2014BR056795

PATIENT
  Age: 72 Year
  Sex: Male
  Weight: 62 kg

DRUGS (7)
  1. GLIFAGE [Concomitant]
     Active Substance: METFORMIN HYDROCHLORIDE
     Indication: BLOOD GLUCOSE INCREASED
     Dosage: 1 DF, DAILY (750)
     Route: 065
  2. LIPITOR [Concomitant]
     Active Substance: ATORVASTATIN CALCIUM
     Indication: FAT TISSUE INCREASED
     Dosage: 1 DF, DAILY
     Route: 065
     Dates: start: 201309
  3. HALOPERIDOL. [Concomitant]
     Active Substance: HALOPERIDOL
     Dosage: UNK UKN, UNK
     Route: 065
  4. ASPIRINA PREVENT [Concomitant]
     Active Substance: ASPIRIN
     Indication: BLOOD PRESSURE
     Dosage: 1 DF, DAILY (100)
     Route: 065
  5. ALLOPURINOL. [Concomitant]
     Active Substance: ALLOPURINOL
     Dosage: 1 DF, DAILY (100)
  6. EXELON PATCH [Suspect]
     Active Substance: RIVASTIGMINE
     Indication: PARKINSONISM
     Dosage: 18 MG/ 10 CM2 (9.5 MG/24 HOURS)
     Route: 062
     Dates: start: 2013
  7. TENADREN [Concomitant]
     Active Substance: HYDROCHLOROTHIAZIDE\PROPRANOLOL HYDROCHLORIDE
     Indication: BLOOD PRESSURE ABNORMAL
     Dosage: 1 DF (40/12.5), DAILY
     Route: 065

REACTIONS (10)
  - Asthenia [Recovered/Resolved]
  - Pneumonia [Recovered/Resolved]
  - Aspiration [Unknown]
  - Peripheral coldness [Recovering/Resolving]
  - Incoherent [Recovering/Resolving]
  - Blood sodium decreased [Recovering/Resolving]
  - Dysphagia [Not Recovered/Not Resolved]
  - Prostatic disorder [Recovered/Resolved]
  - Urinary tract infection [Recovered/Resolved]
  - Skin disorder [Recovering/Resolving]

NARRATIVE: CASE EVENT DATE: 20140111
